FAERS Safety Report 7431800-1 (Version None)
Quarter: 2011Q2

REPORT INFORMATION
  Report Type: 
  Country: None (occurrence: None)
  Receive Date: 20110420
  Receipt Date: 20110420
  Transmission Date: 20111010
  Serious: No
  Sender: FDA-Public Use
  Company Number: None

PATIENT
  Age: 68 Year
  Sex: Male

DRUGS (1)
  1. RITUXIMAB [Suspect]
     Indication: NEOPLASM MALIGNANT
     Dosage: 750 MG ONCE IV
     Route: 042
     Dates: start: 20110214, end: 20110214

REACTIONS (15)
  - FLUSHING [None]
  - HYPERHIDROSIS [None]
  - DIARRHOEA [None]
  - DYSPHAGIA [None]
  - DRY MOUTH [None]
  - BLOOD PRESSURE DIASTOLIC INCREASED [None]
  - NAUSEA [None]
  - SOMNOLENCE [None]
  - HYPOTENSION [None]
  - FEELING HOT [None]
  - OXYGEN SATURATION DECREASED [None]
  - LETHARGY [None]
  - BLOOD GLUCOSE INCREASED [None]
  - PALLOR [None]
  - INFUSION RELATED REACTION [None]
